FAERS Safety Report 10515037 (Version 2)
Quarter: 2014Q4

REPORT INFORMATION
  Report Type: Spontaneous
  Country: FR (occurrence: FR)
  Receive Date: 20141013
  Receipt Date: 20141223
  Transmission Date: 20150528
  Serious: Yes (Hospitalization, Other)
  Sender: FDA-Public Use
  Company Number: PHHY2014FR132425

PATIENT
  Age: 74 Year
  Sex: Female
  Weight: 53 kg

DRUGS (5)
  1. NICOTINE. [Concomitant]
     Active Substance: NICOTINE
     Route: 065
  2. MELATONIN [Concomitant]
     Active Substance: MELATONIN
     Indication: PRODUCT USED FOR UNKNOWN INDICATION
     Dosage: 1 DF (10 OT)
     Route: 065
  3. STALEVO [Suspect]
     Active Substance: CARBIDOPA\ENTACAPONE\LEVODOPA
     Indication: PARKINSON^S DISEASE
     Dosage: 4 DF (ENTA 100MG, LEVO 25MG, CARB 200MG) QD
     Route: 065
  4. VENLAFAXINE [Suspect]
     Active Substance: VENLAFAXINE HYDROCHLORIDE
     Indication: DEPRESSION
     Route: 065
  5. SINEMET [Concomitant]
     Active Substance: CARBIDOPA\LEVODOPA
     Indication: PRODUCT USED FOR UNKNOWN INDICATION
     Dosage: 4 DF (LEVO 100MG, CARB 10MG) QD
     Route: 065

REACTIONS (6)
  - Muscle atrophy [Unknown]
  - Tremor [Unknown]
  - General physical health deterioration [Unknown]
  - Gait disturbance [Unknown]
  - Nausea [Unknown]
  - Major depression [Unknown]

NARRATIVE: CASE EVENT DATE: 20141001
